FAERS Safety Report 21606442 (Version 1)
Quarter: 2022Q4

REPORT INFORMATION
  Report Type: Report from Study
  Country: US (occurrence: US)
  Receive Date: 20221117
  Receipt Date: 20221117
  Transmission Date: 20230113
  Serious: No
  Sender: FDA-Public Use
  Company Number: US-ABBVIE-4200142

PATIENT
  Age: 85 Year
  Sex: Female

DRUGS (16)
  1. IMBRUVICA [Suspect]
     Active Substance: IBRUTINIB
     Indication: Chronic lymphocytic leukaemia
     Route: 048
  2. PreserVision AREDS 2 Oral Capsule [Concomitant]
     Indication: Product used for unknown indication
     Route: 065
  3. Claritin Oral Tablet 10 MG [Concomitant]
     Indication: Product used for unknown indication
     Route: 048
  4. Benadryl Allergy Oral Tablet 25 MG [Concomitant]
     Indication: Product used for unknown indication
     Route: 048
  5. BENZOCAINE-MENTHOL [Concomitant]
     Indication: Product used for unknown indication
     Route: 065
  6. Furosemide Oral Tablet 20 MG [Concomitant]
     Indication: Product used for unknown indication
     Route: 048
  7. TUMS [Concomitant]
     Active Substance: CALCIUM CARBONATE
     Indication: Product used for unknown indication
     Route: 065
  8. Tylenol Extra Strength Oral Tablet [Concomitant]
     Indication: Product used for unknown indication
     Route: 065
  9. Simvastatin Oral Tablet 10 MG [Concomitant]
     Indication: Product used for unknown indication
     Route: 065
  10. VITAMIN D3 [Concomitant]
     Active Substance: CHOLECALCIFEROL
     Indication: Product used for unknown indication
     Route: 065
  11. Midodrine HCl Oral Tablet 2.5 MG [Concomitant]
     Indication: Product used for unknown indication
     Route: 048
  12. VITAMIN B COMPLEX [Concomitant]
     Active Substance: CYANOCOBALAMIN\DEXPANTHENOL\NIACINAMIDE\PYRIDOXINE HYDROCHLORIDE\RIBOFLAVIN 5^-PHOSPHATE SODIUM\THIA
     Indication: Product used for unknown indication
     Route: 065
  13. Deep Sea Nasal Spray Nasal Solution [Concomitant]
     Indication: Product used for unknown indication
     Route: 065
  14. Aspirin Oral Tablet Delayed Release [Concomitant]
     Indication: Product used for unknown indication
     Dosage: DELAYED RELEASE
     Route: 048
  15. Robitussin MucusChest Congest Oral [Concomitant]
     Indication: Product used for unknown indication
     Route: 065
  16. Aricept Oral Tablet 10 MG [Concomitant]
     Indication: Product used for unknown indication
     Route: 048

REACTIONS (3)
  - SARS-CoV-2 test positive [Recovering/Resolving]
  - Laboratory test abnormal [Unknown]
  - Cough [Not Recovered/Not Resolved]

NARRATIVE: CASE EVENT DATE: 20221028
